FAERS Safety Report 25989923 (Version 1)
Quarter: 2025Q4

REPORT INFORMATION
  Report Type: Spontaneous
  Country: US (occurrence: None)
  Receive Date: 20251031
  Receipt Date: 20251031
  Transmission Date: 20260117
  Serious: Yes (Death)
  Sender: FDA-CTU
  Company Number: None

PATIENT
  Age: 63 Year
  Sex: Female

DRUGS (10)
  1. TADALAFIL [Suspect]
     Active Substance: TADALAFIL
     Indication: Pulmonary arterial hypertension
     Dosage: FREQUENCY : DAILY;?
     Route: 048
     Dates: start: 20230502, end: 20250921
  2. AMBRISENTAN [Suspect]
     Active Substance: AMBRISENTAN
  3. TREPROSTINIL [Concomitant]
     Active Substance: TREPROSTINIL
  4. DILTIAZEM [Concomitant]
     Active Substance: DILTIAZEM
  5. SPIRONOLACTONE [Concomitant]
     Active Substance: SPIRONOLACTONE
  6. METOLAZONE [Concomitant]
     Active Substance: METOLAZONE
  7. CELLCEPT [Concomitant]
     Active Substance: MYCOPHENOLATE MOFETIL
  8. HYDROXYCHLOROQUINE [Concomitant]
     Active Substance: HYDROXYCHLOROQUINE
  9. FUROSEMIDE [Concomitant]
     Active Substance: FUROSEMIDE
  10. oxygen intranasal [Concomitant]

REACTIONS (3)
  - Subdural haematoma [None]
  - Fall [None]
  - Disease complication [None]

NARRATIVE: CASE EVENT DATE: 20250921
